FAERS Safety Report 18048520 (Version 1)
Quarter: 2020Q3

REPORT INFORMATION
  Report Type: Spontaneous
  Country: US (occurrence: US)
  Receive Date: 20200720
  Receipt Date: 20200720
  Transmission Date: 20201103
  Serious: No
  Sender: FDA-Public Use
  Company Number: None

PATIENT
  Sex: Female
  Weight: 4.5 kg

DRUGS (2)
  1. MYLICON INFANTS GAS RELIEF ORIGINAL [Suspect]
     Active Substance: DIMETHICONE
     Indication: FLATULENCE
     Dosage: ?          QUANTITY:0.3 ML;?
     Route: 048
  2. MYLICON INFANTS GAS RELIEF ORIGINAL [Suspect]
     Active Substance: DIMETHICONE
     Indication: DISCOMFORT
     Dosage: ?          QUANTITY:0.3 ML;?
     Route: 048

REACTIONS (1)
  - Gastrointestinal motility disorder [None]
